FAERS Safety Report 12169329 (Version 3)
Quarter: 2019Q1

REPORT INFORMATION
  Report Type: Spontaneous
  Country: US (occurrence: US)
  Receive Date: 20160310
  Receipt Date: 20190320
  Transmission Date: 20190417
  Serious: Yes (Hospitalization, Other)
  Sender: FDA-Public Use
  Company Number: US-OTSUKA-2015_016589

PATIENT
  Sex: Female
  Weight: 91.16 kg

DRUGS (7)
  1. ABILIFY [Suspect]
     Active Substance: ARIPIPRAZOLE
     Indication: ANXIETY
  2. CARBAMAZEPINE. [Concomitant]
     Active Substance: CARBAMAZEPINE
     Indication: PRODUCT USED FOR UNKNOWN INDICATION
     Dosage: UNK
     Route: 065
  3. ABILIFY MAINTENA [Suspect]
     Active Substance: ARIPIPRAZOLE
     Indication: ANXIETY
     Dosage: 400 MG, QM
     Route: 030
     Dates: start: 20150924
  4. ARIPIPRAZOLE. [Suspect]
     Active Substance: ARIPIPRAZOLE
     Indication: PRODUCT USED FOR UNKNOWN INDICATION
     Dosage: UNK
     Route: 065
  5. ABILIFY MAINTENA [Suspect]
     Active Substance: ARIPIPRAZOLE
     Indication: DEPRESSION
     Dosage: EQUIVALENT TO 15-20MG DAILY MONTHLY
     Route: 065
     Dates: start: 2014, end: 2016
  6. ABILIFY [Suspect]
     Active Substance: ARIPIPRAZOLE
     Indication: SCHIZOPHRENIA
     Dosage: 20 MG, QD
     Route: 048
     Dates: start: 2016
  7. ABILIFY [Suspect]
     Active Substance: ARIPIPRAZOLE
     Indication: DEPRESSION

REACTIONS (25)
  - Eating disorder [Not Recovered/Not Resolved]
  - Dizziness [Recovering/Resolving]
  - Gait disturbance [Unknown]
  - Hypopnoea [Unknown]
  - Tremor [Not Recovered/Not Resolved]
  - Weight increased [Recovering/Resolving]
  - Somnolence [Unknown]
  - Dyspnoea [Unknown]
  - Euphoric mood [Recovered/Resolved]
  - Sexual dysfunction [Not Recovered/Not Resolved]
  - Hunger [Unknown]
  - Feeling abnormal [Unknown]
  - Depressed mood [Unknown]
  - Menstruation irregular [Not Recovered/Not Resolved]
  - Lethargy [Unknown]
  - Headache [Unknown]
  - Chest pain [Not Recovered/Not Resolved]
  - Drug dependence [Unknown]
  - Presyncope [Recovered/Resolved]
  - Asthenia [Unknown]
  - Incorrect dose administered [Unknown]
  - Fear [Not Recovered/Not Resolved]
  - Muscle spasms [Unknown]
  - Injection site pain [Unknown]
  - Product use in unapproved indication [Unknown]

NARRATIVE: CASE EVENT DATE: 2018
